FAERS Safety Report 24444675 (Version 1)
Quarter: 2024Q4

REPORT INFORMATION
  Report Type: Spontaneous
  Country: US (occurrence: US)
  Receive Date: 20241016
  Receipt Date: 20241016
  Transmission Date: 20250114
  Serious: No
  Sender: SANDOZ
  Company Number: US-002147023-NVSC2024US017550

PATIENT
  Sex: Female

DRUGS (1)
  1. COMBIPATCH [Suspect]
     Active Substance: ESTRADIOL\NORETHINDRONE ACETATE
     Indication: Product used for unknown indication
     Dosage: UNK, (CHANGE EVERY MONDAYS AND THURSDAYS)
     Route: 062

REACTIONS (3)
  - Intermenstrual bleeding [Recovered/Resolved]
  - Product storage error [Recovered/Resolved]
  - Product dose omission issue [Recovered/Resolved]
